FAERS Safety Report 5895100-3 (Version None)
Quarter: 2008Q3

REPORT INFORMATION
  Report Type: 
  Country: None (occurrence: None)
  Receive Date: 20080924
  Receipt Date: 20080912
  Transmission Date: 20090109
  Serious: Yes (Hospitalization)
  Sender: FDA-Public Use
  Company Number: JP-PFIZER INC-2008068613

PATIENT
  Sex: Male
  Weight: 75.8 kg

DRUGS (11)
  1. SUTENT [Suspect]
     Indication: RENAL CELL CARCINOMA
     Route: 048
     Dates: start: 20080701, end: 20080713
  2. MORPHINE [Suspect]
     Dates: start: 20080712
  3. OXYCONTIN [Suspect]
     Route: 048
     Dates: end: 20080712
  4. VESICARE [Concomitant]
     Route: 048
  5. KAYEXALATE [Concomitant]
     Route: 048
     Dates: end: 20080709
  6. LOXONIN [Concomitant]
     Route: 048
  7. MAG-LAX [Concomitant]
     Route: 048
  8. NORVASC [Concomitant]
     Route: 048
  9. BLOPRESS [Concomitant]
     Route: 048
  10. ALOSENN [Concomitant]
     Route: 048
  11. SIMVASTATIN [Concomitant]
     Route: 048

REACTIONS (1)
  - ALTERED STATE OF CONSCIOUSNESS [None]
